FAERS Safety Report 7138866-7 (Version None)
Quarter: 2010Q4

REPORT INFORMATION
  Report Type: 
  Country: None (occurrence: None)
  Receive Date: 20101201
  Receipt Date: 20101201
  Transmission Date: 20110411
  Serious: Yes (Other)
  Sender: FDA-Public Use
  Company Number: None

PATIENT
  Sex: Male
  Weight: 61.2356 kg

DRUGS (2)
  1. NACYNTA [Suspect]
     Indication: OSTEOARTHRITIS
     Dosage: 100MG 1 - 2 3X/DAY RXED 10/29/10
     Dates: start: 20101029
  2. NORVASC [Concomitant]

REACTIONS (3)
  - DRY MOUTH [None]
  - HALLUCINATION, VISUAL [None]
  - IRRITABILITY [None]
